FAERS Safety Report 8101999-2 (Version None)
Quarter: 2012Q1

REPORT INFORMATION
  Report Type: 
  Country: None (occurrence: None)
  Receive Date: 20120131
  Receipt Date: 20120123
  Transmission Date: 20120608
  Serious: Yes (Other)
  Sender: FDA-Public Use
  Company Number: US-BAYER-2012-008422

PATIENT
  Sex: Female

DRUGS (2)
  1. CLOT BUSTER [Concomitant]
     Indication: MYOCARDIAL INFARCTION
  2. ASPIRIN [Suspect]
     Indication: MYOCARDIAL INFARCTION
     Dosage: 1 DF, ONCE
     Route: 048
     Dates: start: 20111221, end: 20111221

REACTIONS (4)
  - ABDOMINAL PAIN UPPER [None]
  - PAIN IN EXTREMITY [None]
  - PAIN IN JAW [None]
  - MYOCARDIAL INFARCTION [None]
